FAERS Safety Report 9257617 (Version 1)
Quarter: 2013Q2

REPORT INFORMATION
  Report Type: Spontaneous
  Country: IT (occurrence: IT)
  Receive Date: 20130426
  Receipt Date: 20130426
  Transmission Date: 20140414
  Serious: Yes (Life-Threatening, Hospitalization)
  Sender: FDA-Public Use
  Company Number: IT-PFIZER INC-2013127908

PATIENT
  Age: 24 Year
  Sex: Male

DRUGS (3)
  1. ZOLOFT [Suspect]
     Dosage: 50MG X 15 DF, TOTAL
     Route: 048
     Dates: start: 20130115, end: 20130115
  2. DEPAKIN [Suspect]
     Dosage: 500MG X 60 DF, TOTAL
     Route: 048
     Dates: start: 20130115, end: 20130115
  3. CARBOLITHIUM [Suspect]
     Dosage: 300MG X 50 DF, TOTAL
     Route: 048
     Dates: start: 20130115, end: 20130115

REACTIONS (3)
  - Overdose [Not Recovered/Not Resolved]
  - Toxicity to various agents [Not Recovered/Not Resolved]
  - Drug abuse [Not Recovered/Not Resolved]
